FAERS Safety Report 23686615 (Version 1)
Quarter: 2024Q1

REPORT INFORMATION
  Report Type: Spontaneous
  Country: US (occurrence: US)
  Receive Date: 20240329
  Receipt Date: 20240329
  Transmission Date: 20240410
  Serious: Yes (Hospitalization, Other)
  Sender: FDA-Public Use
  Company Number: US-MLMSERVICE-20240312-4870520-1

PATIENT
  Age: 4 Decade
  Sex: Female

DRUGS (6)
  1. METHOTREXATE [Suspect]
     Active Substance: METHOTREXATE
     Indication: Metastases to central nervous system
     Route: 037
  2. ERIBULIN [Concomitant]
     Active Substance: ERIBULIN
     Indication: Metastases to central nervous system
  3. ERIBULIN [Concomitant]
     Active Substance: ERIBULIN
     Indication: Hormone receptor positive HER2 negative breast cancer
  4. METHOTREXATE [Suspect]
     Active Substance: METHOTREXATE
     Indication: Hormone receptor positive HER2 negative breast cancer
     Route: 037
  5. METHOTREXATE [Suspect]
     Active Substance: METHOTREXATE
     Indication: Metastases to meninges
     Route: 037
  6. ERIBULIN [Concomitant]
     Active Substance: ERIBULIN
     Indication: Metastases to meninges

REACTIONS (2)
  - Radiation necrosis [Unknown]
  - Off label use [Unknown]
